FAERS Safety Report 8114162-6 (Version None)
Quarter: 2012Q1

REPORT INFORMATION
  Report Type: 
  Country: None (occurrence: None)
  Receive Date: 20120205
  Receipt Date: 20120127
  Transmission Date: 20120608
  Serious: Yes (Hospitalization)
  Sender: FDA-Public Use
  Company Number: PHHY2012AU008760

PATIENT
  Age: 35 Year

DRUGS (2)
  1. VALPROIC ACID [Suspect]
     Indication: MENTAL DISORDER
     Dosage: UNK UKN, UNK
  2. METFORMIN HCL [Concomitant]
     Indication: POLYCYSTIC OVARIES

REACTIONS (2)
  - PANCREATITIS ACUTE [None]
  - METABOLIC ACIDOSIS [None]
